FAERS Safety Report 4416634-4 (Version None)
Quarter: 2004Q3

REPORT INFORMATION
  Report Type: 
  Country: None (occurrence: None)
  Receive Date: 20040802
  Receipt Date: 20040716
  Transmission Date: 20050211
  Serious: Yes (Hospitalization)
  Sender: FDA-Public Use
  Company Number: 201613

PATIENT
  Age: 57 Year
  Sex: Male
  Weight: 86.1834 kg

DRUGS (7)
  1. AVONEX [Suspect]
     Indication: MULTIPLE SCLEROSIS
     Dosage: 30 MCG QW IM
     Route: 030
     Dates: start: 19960101, end: 20030801
  2. AVONEX [Suspect]
     Indication: MULTIPLE SCLEROSIS
     Dosage: 30 MCG QW IM
     Route: 030
     Dates: start: 20030801
  3. SOMA [Concomitant]
  4. VICODIN [Concomitant]
  5. TYLENOL W/ CODEINE [Concomitant]
  6. DARVOCET-N 100 [Concomitant]
  7. PAIN MEDICATION (NOS) [Concomitant]

REACTIONS (3)
  - CARDIAC ARREST [None]
  - MALAISE [None]
  - PNEUMONIA [None]
